FAERS Safety Report 10558849 (Version 2)
Quarter: 2014Q4

REPORT INFORMATION
  Report Type: Spontaneous
  Country: BE (occurrence: BE)
  Receive Date: 20141101
  Receipt Date: 20141111
  Transmission Date: 20150529
  Serious: Yes (Hospitalization)
  Sender: FDA-Public Use
  Company Number: BE-ACCORD-026735

PATIENT
  Age: 77 Year
  Sex: Female

DRUGS (1)
  1. ALLOPURINOL/ALLOPURINOL SODIUM [Suspect]
     Active Substance: ALLOPURINOL SODIUM
     Indication: PRODUCT USED FOR UNKNOWN INDICATION

REACTIONS (3)
  - Pruritus [Unknown]
  - Stress cardiomyopathy [Recovering/Resolving]
  - Rash erythematous [Unknown]
